FAERS Safety Report 7274949-9 (Version None)
Quarter: 2011Q1

REPORT INFORMATION
  Report Type: 
  Country: None (occurrence: None)
  Receive Date: 20110204
  Receipt Date: 20110124
  Transmission Date: 20110831
  Serious: Yes (Other)
  Sender: FDA-Public Use
  Company Number: US-SANOFI-AVENTIS-2011SA006596

PATIENT
  Age: 69 Year
  Sex: Female

DRUGS (18)
  1. COUMADIN [Concomitant]
  2. XOPENEX [Concomitant]
  3. DARVOCET-N 100 [Concomitant]
  4. DIGOXIN [Concomitant]
  5. ZINC [Concomitant]
  6. MULTAQ [Suspect]
     Route: 048
     Dates: start: 20090924, end: 20110120
  7. RESTASIS [Concomitant]
  8. ZOLOFT [Concomitant]
  9. XYZAL [Concomitant]
  10. CALCIUM [Concomitant]
  11. LISINOPRIL [Concomitant]
  12. SPIRIVA [Concomitant]
  13. VITAMIN D [Concomitant]
  14. XANAX [Concomitant]
  15. VITAMIN B COMPLEX [Concomitant]
  16. FUROSEMIDE [Concomitant]
  17. FISH OIL [Concomitant]
  18. MAG-OX [Concomitant]

REACTIONS (1)
  - HEPATOCELLULAR INJURY [None]
